FAERS Safety Report 5841674-8 (Version None)
Quarter: 2008Q3

REPORT INFORMATION
  Report Type: 
  Country: None (occurrence: None)
  Receive Date: 20080812
  Receipt Date: 20080805
  Transmission Date: 20090109
  Serious: Yes (Hospitalization)
  Sender: FDA-Public Use
  Company Number: FR-AVENTIS-200814055EU

PATIENT
  Age: 76 Year
  Sex: Female

DRUGS (8)
  1. FLUDEX                             /00340101/ [Suspect]
     Dosage: DOSE: UNK
     Route: 048
  2. LESCOL [Concomitant]
     Dosage: DOSE: UNK
  3. BETASERC [Concomitant]
     Dosage: DOSE: UNK
  4. DIOVANE [Concomitant]
     Dosage: DOSE: UNK
  5. NORVASC [Concomitant]
     Dosage: DOSE: UNK
  6. ITERIUM [Concomitant]
     Dosage: DOSE: UNK
  7. MAGNOSOLV [Concomitant]
     Dosage: DOSE: UNK
  8. AEROCORTIN OTIC [Concomitant]
     Dosage: DOSE: UNK

REACTIONS (2)
  - BLOOD ELECTROLYTES ABNORMAL [None]
  - CIRCULATORY COLLAPSE [None]
